FAERS Safety Report 7259795-4 (Version None)
Quarter: 2011Q1

REPORT INFORMATION
  Report Type: 
  Country: None (occurrence: None)
  Receive Date: 20110130
  Receipt Date: 20100903
  Transmission Date: 20110831
  Serious: No
  Sender: FDA-Public Use
  Company Number: US-ABBOTT-10P-163-0668916-00

PATIENT
  Age: 40 Year
  Sex: Female

DRUGS (4)
  1. VITAMIN D [Concomitant]
     Indication: VITAMIN SUPPLEMENTATION
  2. MILOXICAM [Concomitant]
     Indication: PAIN
  3. TAMZITADINE [Concomitant]
     Indication: MUSCLE SPASMS
  4. HUMIRA [Suspect]
     Indication: BEHCET'S SYNDROME
     Dates: start: 20100723

REACTIONS (1)
  - SINUS CONGESTION [None]
